FAERS Safety Report 8986284 (Version 1)
Quarter: 2012Q4

REPORT INFORMATION
  Report Type: 
  Country: JP (occurrence: None)
  Receive Date: 20121217
  Receipt Date: 20121217
  Transmission Date: 20130627
  Serious: Yes (Hospitalization)
  Sender: FDA-Public Use
  Company Number: 2012VX005375

PATIENT
  Age: 81 Year
  Sex: Male

DRUGS (9)
  1. VISUDYNE [Suspect]
  2. LUCENTIS [Suspect]
  3. VEGAMOX [Concomitant]
  4. RINDERON A [Concomitant]
  5. SOLANTAL [Concomitant]
  6. CALCIUM CARBONATE [Concomitant]
  7. MEIACT [Concomitant]
  8. HYALEIN [Concomitant]
  9. TARIVID /SCH/ [Concomitant]

REACTIONS (4)
  - Dizziness [None]
  - Dizziness [None]
  - Cerebrovascular accident [None]
  - Cerebellar infarction [None]
